FAERS Safety Report 14685555 (Version 3)
Quarter: 2018Q2

REPORT INFORMATION
  Report Type: Report from Study
  Country: US (occurrence: US)
  Receive Date: 20180327
  Receipt Date: 20180509
  Transmission Date: 20180711
  Serious: Yes (Hospitalization)
  Sender: FDA-Public Use
  Company Number: US-GILEAD-2018-0328791

PATIENT
  Age: 83 Year
  Sex: Male
  Weight: 65 kg

DRUGS (26)
  1. OXYCONTIN [Concomitant]
     Active Substance: OXYCODONE HYDROCHLORIDE
  2. CAFFEINE. [Concomitant]
     Active Substance: CAFFEINE
  3. VITAMIN D3 [Concomitant]
     Active Substance: CHOLECALCIFEROL
  4. XTANDI [Concomitant]
     Active Substance: ENZALUTAMIDE
  5. AMBRISENTAN [Suspect]
     Active Substance: AMBRISENTAN
     Indication: PULMONARY FIBROSIS
  6. METOPROLOL. [Concomitant]
     Active Substance: METOPROLOL
  7. LASIX [Concomitant]
     Active Substance: FUROSEMIDE
  8. LIPITOR [Concomitant]
     Active Substance: ATORVASTATIN CALCIUM
  9. AMBRISENTAN [Suspect]
     Active Substance: AMBRISENTAN
     Indication: PROSTATE CANCER METASTATIC
  10. TAMSULOSIN [Concomitant]
     Active Substance: TAMSULOSIN
  11. ISOSORBIDE MONONITRATE. [Concomitant]
     Active Substance: ISOSORBIDE MONONITRATE
  12. ASPIRIN                            /00002701/ [Concomitant]
     Active Substance: ASPIRIN
  13. VITAMIN E                          /00110501/ [Concomitant]
     Active Substance: TOCOPHEROL
  14. AMBRISENTAN [Suspect]
     Active Substance: AMBRISENTAN
     Indication: PULMONARY HYPERTENSION
     Dosage: 5 MG, UNK
     Route: 065
     Dates: start: 20180324, end: 20180413
  15. NITROGLYCERIN ABCUR [Concomitant]
  16. LISINOPRIL. [Concomitant]
     Active Substance: LISINOPRIL
  17. CLOPIDOGREL [Concomitant]
     Active Substance: CLOPIDOGREL BISULFATE
  18. LORAZEPAM. [Concomitant]
     Active Substance: LORAZEPAM
  19. OXYCODONE [Concomitant]
     Active Substance: OXYCODONE
  20. FUROSEMIDE. [Concomitant]
     Active Substance: FUROSEMIDE
  21. ISOSORBIDE NITRATE [Concomitant]
  22. OMEPRAZOLE. [Concomitant]
     Active Substance: OMEPRAZOLE
  23. ZOMETA [Concomitant]
     Active Substance: ZOLEDRONIC ACID
  24. POTASSIUM [Concomitant]
     Active Substance: POTASSIUM
  25. MEGESTROL [Concomitant]
     Active Substance: MEGESTROL
  26. LUPRON [Concomitant]
     Active Substance: LEUPROLIDE ACETATE

REACTIONS (6)
  - Blood pressure fluctuation [Recovering/Resolving]
  - Hypotension [Unknown]
  - Fibrosis [Unknown]
  - Dyspnoea [Unknown]
  - Oedema [Unknown]
  - Off label use [Unknown]

NARRATIVE: CASE EVENT DATE: 20180327
